APPROVED DRUG PRODUCT: CERDELGA
Active Ingredient: ELIGLUSTAT TARTRATE
Strength: EQ 84MG BASE
Dosage Form/Route: CAPSULE;ORAL
Application: N205494 | Product #001 | TE Code: AB
Applicant: GENZYME CORP
Approved: Aug 19, 2014 | RLD: Yes | RS: Yes | Type: RX

PATENTS:
Patent 12465586 | Expires: Jun 5, 2032
Patent 12465586 | Expires: Jun 5, 2032
Patent 10888547 | Expires: Jan 31, 2031
Patent 10888547 | Expires: Jan 31, 2031
Patent 10888544 | Expires: Dec 13, 2038
Patent 10888544 | Expires: Dec 13, 2038
Patent 7196205 | Expires: Jun 26, 2026
Patent 11458119 | Expires: Nov 24, 2030